FAERS Safety Report 23734896 (Version 1)
Quarter: 2024Q2

REPORT INFORMATION
  Report Type: Other
  Country: FR (occurrence: FR)
  Receive Date: 20240412
  Receipt Date: 20240412
  Transmission Date: 20240716
  Serious: Yes (Hospitalization)
  Sender: FDA-Public Use
  Company Number: None

PATIENT

DRUGS (4)
  1. SPIRONOLACTONE [Suspect]
     Active Substance: SPIRONOLACTONE
     Indication: Pulmonary arterial hypertension
     Dosage: 50 MILLIGRAM
     Route: 048
     Dates: start: 20240201
  2. URSODIOL [Suspect]
     Active Substance: URSODIOL
     Indication: Liver disorder
     Dosage: 750 MILLIGRAM
     Route: 048
     Dates: start: 20240201
  3. INNOHEP [Suspect]
     Active Substance: TINZAPARIN SODIUM
     Indication: Pulmonary arterial hypertension
     Dosage: 9000 MILLIGRAM
     Route: 065
     Dates: start: 20240201
  4. PREDNISOLONE [Suspect]
     Active Substance: PREDNISOLONE
     Indication: Liver disorder
     Dosage: UNK
     Route: 048
     Dates: start: 20240101

REACTIONS (2)
  - Neutropenia [Not Recovered/Not Resolved]
  - Rash [Not Recovered/Not Resolved]

NARRATIVE: CASE EVENT DATE: 20240315
